FAERS Safety Report 5413250-2 (Version None)
Quarter: 2007Q3

REPORT INFORMATION
  Report Type: 
  Country: None (occurrence: None)
  Receive Date: 20070717
  Receipt Date: 20060728
  Transmission Date: 20080115
  Serious: Yes (Hospitalization)
  Sender: FDA-Public Use
  Company Number: HQWYE524131JUL06

PATIENT
  Sex: Male

DRUGS (2)
  1. ADVIL LIQUI-GELS [Suspect]
     Indication: HEADACHE
     Dosage: 2 TABLETS ONCE TO TWICE DAILY, ;  2 TABLETS AS NEEDED,
     Dates: start: 20050101, end: 20050101
  2. ADVIL LIQUI-GELS [Suspect]
     Indication: HEADACHE
     Dosage: 2 TABLETS ONCE TO TWICE DAILY, ;  2 TABLETS AS NEEDED,
     Dates: start: 20050101

REACTIONS (1)
  - GASTRIC HAEMORRHAGE [None]
